FAERS Safety Report 9371445 (Version 1)
Quarter: 2013Q2

REPORT INFORMATION
  Report Type: Spontaneous
  Country: US (occurrence: None)
  Receive Date: 20130626
  Receipt Date: 20130626
  Transmission Date: 20140414
  Serious: No
  Sender: FDA-Public Use
  Company Number: None

PATIENT
  Sex: Female
  Weight: 69.4 kg

DRUGS (9)
  1. LETROZOLE [Suspect]
     Route: 048
     Dates: start: 20091222, end: 20130625
  2. LEXAPRO [Concomitant]
  3. DETROL [Concomitant]
  4. LEVOXYL [Concomitant]
  5. CALCIUM [Concomitant]
  6. MAGNESIUM [Concomitant]
  7. VIT D [Concomitant]
  8. VITAMIN B12 [Concomitant]
  9. RESVERATROL [Concomitant]

REACTIONS (2)
  - Hepatic steatosis [None]
  - Weight decreased [None]
